FAERS Safety Report 4728528-5 (Version None)
Quarter: 2005Q3

REPORT INFORMATION
  Report Type: 
  Country: None (occurrence: None)
  Receive Date: 20050729
  Receipt Date: 20050512
  Transmission Date: 20060218
  Serious: No
  Sender: FDA-Public Use
  Company Number: US-GLAXOSMITHKLINE-A0558364A

PATIENT
  Age: 52 Year
  Sex: Female

DRUGS (4)
  1. ZANTAC [Suspect]
     Dosage: 150MG FIVE TIMES PER DAY
     Route: 048
     Dates: start: 20031201
  2. PREMARIN [Concomitant]
  3. DIAZIDE [Concomitant]
  4. XANAX [Concomitant]

REACTIONS (2)
  - DRUG INEFFECTIVE [None]
  - PHARMACEUTICAL PRODUCT COMPLAINT [None]
